FAERS Safety Report 6432903-0 (Version None)
Quarter: 2009Q4

REPORT INFORMATION
  Report Type: 
  Country: None (occurrence: None)
  Receive Date: 20091109
  Receipt Date: 20091103
  Transmission Date: 20100525
  Serious: Yes (Hospitalization)
  Sender: FDA-Public Use
  Company Number: FR-MERCK-0911FRA00010

PATIENT
  Age: 86 Year
  Sex: Female

DRUGS (6)
  1. HYZAAR [Suspect]
     Indication: HYPERTENSION
     Route: 048
     Dates: end: 20090119
  2. AMLODIPINE BESYLATE [Suspect]
     Indication: HYPERTENSION
     Route: 048
     Dates: end: 20090119
  3. TAMSULOSIN HYDROCHLORIDE [Concomitant]
     Route: 048
  4. URAPIDIL [Concomitant]
     Route: 048
  5. CLOPIDOGREL BISULFATE [Concomitant]
     Route: 048
  6. ZOCOR [Concomitant]
     Route: 048

REACTIONS (1)
  - FALL [None]
